FAERS Safety Report 12441009 (Version 3)
Quarter: 2019Q1

REPORT INFORMATION
  Report Type: Spontaneous
  Country: IT (occurrence: IT)
  Receive Date: 20160607
  Receipt Date: 20190204
  Transmission Date: 20190417
  Serious: Yes (Hospitalization)
  Sender: FDA-Public Use
  Company Number: IT-BIOGEN-2016BI00186707

PATIENT
  Age: 42 Year
  Sex: Female

DRUGS (3)
  1. DIBASE [Concomitant]
     Active Substance: CHOLECALCIFEROL
     Indication: PRODUCT USED FOR UNKNOWN INDICATION
     Route: 048
  2. GABAPENTIN. [Concomitant]
     Active Substance: GABAPENTIN
     Indication: PRODUCT USED FOR UNKNOWN INDICATION
     Route: 048
  3. TECFIDERA [Suspect]
     Active Substance: DIMETHYL FUMARATE
     Indication: RELAPSING-REMITTING MULTIPLE SCLEROSIS
     Route: 048
     Dates: start: 20150519, end: 20160130

REACTIONS (1)
  - Ophthalmic herpes zoster [Recovered/Resolved]

NARRATIVE: CASE EVENT DATE: 20160128
